FAERS Safety Report 13703267 (Version 2)
Quarter: 2017Q3

REPORT INFORMATION
  Report Type: Spontaneous
  Country: HR (occurrence: HR)
  Receive Date: 20170629
  Receipt Date: 20170706
  Transmission Date: 20171127
  Serious: Yes (Other)
  Sender: FDA-Public Use
  Company Number: HR-TEVA-781247ROM

PATIENT
  Age: 76 Year
  Sex: Male

DRUGS (10)
  1. ENTACAPONE. [Suspect]
     Active Substance: ENTACAPONE
     Indication: PARKINSON^S DISEASE
     Dosage: FOR EIGHT YEARS
     Route: 065
  2. PERINDOPRIL [Suspect]
     Active Substance: PERINDOPRIL
     Indication: HYPERTENSION
     Dosage: 10MG FOR TWO YEARS
     Route: 065
  3. AMLODIPINE [Suspect]
     Active Substance: AMLODIPINE BESYLATE
     Dosage: 10MG FOR TWO YEARS
     Route: 065
  4. GLIMEPIRIDE. [Suspect]
     Active Substance: GLIMEPIRIDE
     Indication: DIABETES MELLITUS
     Dosage: 4MG FOR MORE THAN 5 YEARS
     Route: 065
  5. ROPINIROLE. [Suspect]
     Active Substance: ROPINIROLE
     Indication: PARKINSON^S DISEASE
     Dosage: 10MG FOR MORE THAN ONE YEAR, THE DOSE WAS INCREASED TO 12MG
     Route: 065
  6. ROPINIROLE. [Suspect]
     Active Substance: ROPINIROLE
     Indication: PARKINSON^S DISEASE
     Dosage: 12MG
     Route: 065
  7. SIMVASTATIN. [Suspect]
     Active Substance: SIMVASTATIN
     Indication: HYPERLIPIDAEMIA
     Dosage: 20MG FOR MORE THAN 5 YEARS
     Route: 065
  8. LEVODOPA, CARBIDOPA [Concomitant]
     Active Substance: CARBIDOPA\LEVODOPA
     Indication: PARKINSON^S DISEASE
     Route: 065
  9. ACETYLSALICYLIC ACID [Suspect]
     Active Substance: ASPIRIN
     Dosage: 100MG DAILY FOR MORE THAN TEN YEARS
     Route: 065
  10. DICLOFENAC [Suspect]
     Active Substance: DICLOFENAC
     Indication: PAIN
     Dosage: 75MG DAILY
     Route: 030

REACTIONS (1)
  - Pancreatitis acute [Recovering/Resolving]
